FAERS Safety Report 5189572-X (Version None)
Quarter: 2006Q4

REPORT INFORMATION
  Report Type: 
  Country: None (occurrence: None)
  Receive Date: 20061221
  Receipt Date: 20060228
  Transmission Date: 20070319
  Serious: No
  Sender: FDA-Public Use
  Company Number: US-AMGEN-US170558

PATIENT
  Sex: Male

DRUGS (1)
  1. ENBREL [Suspect]
     Indication: PSORIATIC ARTHROPATHY
     Route: 058
     Dates: start: 20040528, end: 20060217

REACTIONS (4)
  - PHARYNGITIS STREPTOCOCCAL [None]
  - SINUSITIS [None]
  - ULCER [None]
  - UPPER RESPIRATORY TRACT INFECTION [None]
